FAERS Safety Report 15895504 (Version 2)
Quarter: 2019Q1

REPORT INFORMATION
  Report Type: Spontaneous
  Country: LT (occurrence: LT)
  Receive Date: 20190131
  Receipt Date: 20190206
  Transmission Date: 20190417
  Serious: No
  Sender: FDA-Public Use
  Company Number: LT-PFIZER INC-2018525651

PATIENT
  Sex: Female
  Weight: 2.2 kg

DRUGS (3)
  1. METHYLPREDNISOLONE. [Suspect]
     Active Substance: METHYLPREDNISOLONE
     Indication: NEPHROTIC SYNDROME
     Dosage: 50 MG, DAILY (MAINTENANCE DOSE GRADUALLY DECREASING)
     Route: 064
  2. ENOXAPARIN SODIUM. [Suspect]
     Active Substance: ENOXAPARIN SODIUM
     Indication: CARDIOVASCULAR EVENT PROPHYLAXIS
     Dosage: 4000 IU, DAILY (HEPARIN)
     Route: 064
  3. METHYLPREDNISOLONE SODIUM SUCCINATE. [Suspect]
     Active Substance: METHYLPREDNISOLONE SODIUM SUCCINATE
     Indication: NEPHROTIC SYNDROME
     Dosage: 300 MG, UNK (LOADING DOSE)
     Route: 064

REACTIONS (1)
  - Maternal exposure during pregnancy [Unknown]
